FAERS Safety Report 15944824 (Version 1)
Quarter: 2019Q1

REPORT INFORMATION
  Report Type: Spontaneous
  Country: US (occurrence: US)
  Receive Date: 20190211
  Receipt Date: 20190211
  Transmission Date: 20190417
  Serious: No
  Sender: FDA-Public Use
  Company Number: US-PERRIGO-18US001148

PATIENT
  Age: 5 Year
  Sex: Male
  Weight: 31.75 kg

DRUGS (1)
  1. IBUPROFEN. [Suspect]
     Active Substance: IBUPROFEN
     Indication: PYREXIA
     Dosage: 250 MG, PRN
     Route: 048
     Dates: start: 20180128, end: 20180129

REACTIONS (3)
  - Dyspnoea [Recovered/Resolved]
  - Choking [Recovered/Resolved]
  - Vomiting [Recovered/Resolved]

NARRATIVE: CASE EVENT DATE: 20180129
